FAERS Safety Report 4774793-8 (Version None)
Quarter: 2005Q3

REPORT INFORMATION
  Report Type: 
  Country: None (occurrence: None)
  Receive Date: 20050921
  Receipt Date: 20050920
  Transmission Date: 20060218
  Serious: Yes (Death)
  Sender: FDA-Public Use
  Company Number: 2005AC01379

PATIENT
  Age: 38 Year

DRUGS (3)
  1. QUETIAPINE FUMARATE [Suspect]
     Route: 048
  2. OLANZAPINE [Suspect]
  3. ZOLPIDEM [Suspect]

REACTIONS (1)
  - COMPLETED SUICIDE [None]
